FAERS Safety Report 8954624 (Version 1)
Quarter: 2012Q4

REPORT INFORMATION
  Report Type: 
  Country: DE (occurrence: DE)
  Receive Date: 20121207
  Receipt Date: 20121207
  Transmission Date: 20130627
  Serious: Yes (Other)
  Sender: FDA-Public Use
  Company Number: DE-TEVA-372274GER

PATIENT
  Age: 0 Year
  Sex: Female

DRUGS (3)
  1. MIRTAZAPINE [Suspect]
     Route: 064
  2. SERTRALINE [Suspect]
     Route: 064
  3. CENTRUM MATERNA [Concomitant]
     Route: 064

REACTIONS (1)
  - Infantile apnoeic attack [Recovered/Resolved]
